FAERS Safety Report 6121359-3 (Version None)
Quarter: 2009Q1

REPORT INFORMATION
  Report Type: 
  Country: None (occurrence: None)
  Receive Date: 20090313
  Receipt Date: 20090313
  Transmission Date: 20090719
  Serious: Yes (Hospitalization)
  Sender: FDA-Public Use
  Company Number: None

PATIENT
  Age: 13 Year
  Sex: Male
  Weight: 104.7809 kg

DRUGS (3)
  1. LITHIUM CARBONATE [Suspect]
     Indication: AFFECTIVE DISORDER
     Dosage: 300MG TID PO
     Route: 048
     Dates: start: 20090218, end: 20090308
  2. GEODON [Suspect]
     Indication: BIPOLAR I DISORDER
     Dosage: 60MG + 180MG BID PO
     Route: 048
  3. GEODON [Suspect]
     Indication: MANIA
     Dosage: 60MG + 180MG BID PO
     Route: 048

REACTIONS (5)
  - APPENDICITIS [None]
  - DIZZINESS [None]
  - DYSPNOEA [None]
  - MUSCULOSKELETAL PAIN [None]
  - TACHYCARDIA [None]
